FAERS Safety Report 16439303 (Version 2)
Quarter: 2019Q3

REPORT INFORMATION
  Report Type: Spontaneous
  Country: IN (occurrence: IN)
  Receive Date: 20190617
  Receipt Date: 20190926
  Transmission Date: 20191004
  Serious: Yes (Death)
  Sender: FDA-Public Use
  Company Number: IN-PFIZER INC-2019258746

PATIENT
  Age: 58 Year
  Sex: Male

DRUGS (1)
  1. CRIZALK [Suspect]
     Active Substance: CRIZOTINIB
     Indication: ALK GENE REARRANGEMENT POSITIVE
     Dosage: 250 MG, 2X/DAY
     Route: 048
     Dates: start: 20190311

REACTIONS (1)
  - Death [Fatal]

NARRATIVE: CASE EVENT DATE: 20190503
